FAERS Safety Report 9054308 (Version 2)
Quarter: 2013Q1

REPORT INFORMATION
  Report Type: Spontaneous
  Country: EC (occurrence: EC)
  Receive Date: 20130208
  Receipt Date: 20130314
  Transmission Date: 20140127
  Serious: Yes (Death)
  Sender: FDA-Public Use
  Company Number: PHHY2013EC011973

PATIENT
  Sex: Female

DRUGS (2)
  1. DIOVAN [Suspect]
     Indication: HYPERTENSION
     Dosage: 80 MG, UNK
     Route: 048
     Dates: start: 2003
  2. MULTI-VITAMINS [Concomitant]

REACTIONS (4)
  - Myocardial infarction [Fatal]
  - Chest pain [Fatal]
  - Back pain [Fatal]
  - Syncope [Fatal]
